FAERS Safety Report 5091225-3 (Version None)
Quarter: 2006Q3

REPORT INFORMATION
  Report Type: 
  Country: None (occurrence: None)
  Receive Date: 20060825
  Receipt Date: 20060825
  Transmission Date: 20061208
  Serious: Yes (Hospitalization)
  Sender: FDA-Public Use
  Company Number: None

PATIENT
  Sex: Female
  Weight: 104.3273 kg

DRUGS (3)
  1. TRAZODONE HCL [Suspect]
     Indication: DEPRESSION
     Dosage: 300MG @PM PO
     Route: 048
     Dates: start: 19981101, end: 20060818
  2. TRAZODONE HCL [Suspect]
     Indication: INSOMNIA
     Dosage: 300MG @PM PO
     Route: 048
     Dates: start: 19981101, end: 20060818
  3. TRAZODONE HCL [Concomitant]

REACTIONS (11)
  - CHILLS [None]
  - CONFUSIONAL STATE [None]
  - DELIRIUM TREMENS [None]
  - DIZZINESS [None]
  - DRUG DEPENDENCE [None]
  - DRUG WITHDRAWAL SYNDROME [None]
  - FEELING ABNORMAL [None]
  - IMPAIRED DRIVING ABILITY [None]
  - NAUSEA [None]
  - NIGHTMARE [None]
  - SOMNOLENCE [None]
